FAERS Safety Report 7441696-X (Version None)
Quarter: 2011Q2

REPORT INFORMATION
  Report Type: 
  Country: None (occurrence: None)
  Receive Date: 20110428
  Receipt Date: 20100507
  Transmission Date: 20111010
  Serious: No
  Sender: FDA-Public Use
  Company Number: A0860245A

PATIENT
  Sex: Female

DRUGS (1)
  1. SEREVENT [Suspect]
     Route: 065

REACTIONS (1)
  - MEDICATION ERROR [None]
